FAERS Safety Report 25949688 (Version 1)
Quarter: 2025Q4

REPORT INFORMATION
  Report Type: Spontaneous
  Country: EU (occurrence: EU)
  Receive Date: 20251022
  Receipt Date: 20251022
  Transmission Date: 20260117
  Serious: Yes (Other)
  Sender: UCB
  Company Number: None

PATIENT
  Age: 46 Year

DRUGS (3)
  1. KEPPRA [Suspect]
     Active Substance: LEVETIRACETAM
     Indication: Seizure
     Dosage: 1500 MILLIGRAM (DAILY)
  2. TEGRETOL [Suspect]
     Active Substance: CARBAMAZEPINE
     Indication: Seizure
     Dosage: ^ALL HER LIFE^
  3. Eltroxin 25 microgram Tablets [Concomitant]
     Indication: Hypothyroidism
     Dosage: UNK

REACTIONS (7)
  - Emotional disorder [Not Recovered/Not Resolved]
  - Conversion disorder [Not Recovered/Not Resolved]
  - Anxiety [Not Recovered/Not Resolved]
  - Abortion spontaneous [Unknown]
  - General physical health deterioration [Not Recovered/Not Resolved]
  - Placental insufficiency [Not Recovered/Not Resolved]
  - Maternal exposure during pregnancy [Unknown]
